FAERS Safety Report 16800560 (Version 1)
Quarter: 2019Q3

REPORT INFORMATION
  Report Type: Spontaneous
  Country: US (occurrence: US)
  Receive Date: 20190723
  Receipt Date: 20190723
  Transmission Date: 20191005
  Serious: Yes (Hospitalization)
  Sender: FDA-Public Use
  Company Number: None

PATIENT
  Age: 71 Year
  Sex: Female

DRUGS (1)
  1. AUBAGIO [Suspect]
     Active Substance: TERIFLUNOMIDE
     Dates: start: 201906

REACTIONS (3)
  - Gait inability [None]
  - Hypoaesthesia [None]
  - Disease recurrence [None]

NARRATIVE: CASE EVENT DATE: 20190715
